FAERS Safety Report 17392390 (Version 1)
Quarter: 2020Q1

REPORT INFORMATION
  Report Type: Spontaneous
  Country: CN (occurrence: CN)
  Receive Date: 20200207
  Receipt Date: 20200207
  Transmission Date: 20200409
  Serious: Yes (Other)
  Sender: FDA-Public Use
  Company Number: NVSC2020CN031710

PATIENT
  Age: 55 Year
  Sex: Female

DRUGS (1)
  1. LAPATINIB [Suspect]
     Active Substance: LAPATINIB
     Indication: PANCREATIC CARCINOMA
     Dosage: 750 MG, QD
     Route: 065

REACTIONS (4)
  - Ascites [Unknown]
  - Vaginal haemorrhage [Recovering/Resolving]
  - Metastasis [Unknown]
  - Product use in unapproved indication [Unknown]
